FAERS Safety Report 10242830 (Version 1)
Quarter: 2014Q2

REPORT INFORMATION
  Report Type: Spontaneous
  Country: FR (occurrence: FR)
  Receive Date: 20140618
  Receipt Date: 20140618
  Transmission Date: 20141212
  Serious: Yes (Hospitalization)
  Sender: FDA-Public Use
  Company Number: FR-JNJFOC-20140602283

PATIENT
  Age: 94 Year
  Sex: Female

DRUGS (2)
  1. DAKTARIN [Suspect]
     Route: 002
  2. DAKTARIN [Suspect]
     Indication: FUNGAL INFECTION
     Route: 002
     Dates: start: 20130920, end: 20131006

REACTIONS (1)
  - Autoimmune hepatitis [Recovering/Resolving]
